FAERS Safety Report 9872213 (Version 1)
Quarter: 2014Q1

REPORT INFORMATION
  Report Type: Spontaneous
  Country: US (occurrence: US)
  Receive Date: 20140205
  Receipt Date: 20140205
  Transmission Date: 20141002
  Serious: No
  Sender: FDA-Public Use
  Company Number: US-ALLERGAN-1306253US

PATIENT
  Age: 55 Year
  Sex: Female

DRUGS (3)
  1. BOTOX COSMETIC [Suspect]
     Indication: SKIN WRINKLING
     Dosage: 8 UNITS, SINGLE
     Dates: start: 20130313, end: 20130313
  2. MVI [Concomitant]
     Indication: SUPPLEMENTATION THERAPY
     Dosage: UNK
  3. HEARTBURN MEDICINE NOS [Concomitant]
     Indication: DYSPEPSIA
     Dosage: UNK

REACTIONS (2)
  - Photophobia [Unknown]
  - Injection site bruising [Unknown]
